FAERS Safety Report 6150295-1 (Version None)
Quarter: 2009Q2

REPORT INFORMATION
  Report Type: 
  Country: None (occurrence: None)
  Receive Date: 20090409
  Receipt Date: 20090401
  Transmission Date: 20091009
  Serious: Yes (Death)
  Sender: FDA-Public Use
  Company Number: US-MERCK-0904USA00299

PATIENT
  Age: 56 Year

DRUGS (3)
  1. DECADRON [Suspect]
     Indication: GLIOBLASTOMA
     Route: 048
  2. BEVACIZUMAB [Concomitant]
     Indication: GLIOBLASTOMA
     Route: 065
  3. SORAFENIB [Concomitant]
     Route: 065

REACTIONS (1)
  - GASTROINTESTINAL PERFORATION [None]
